FAERS Safety Report 25777027 (Version 1)
Quarter: 2025Q3

REPORT INFORMATION
  Report Type: Spontaneous
  Country: US (occurrence: US)
  Receive Date: 20250909
  Receipt Date: 20250909
  Transmission Date: 20251021
  Serious: No
  Sender: DOMPE FARMACEUTICI
  Company Number: US-FARMAPROD-202409-3356

PATIENT
  Sex: Female
  Weight: 51.71 kg

DRUGS (20)
  1. OXERVATE [Suspect]
     Active Substance: CENEGERMIN-BKBJ
     Indication: Neurotrophic keratopathy
     Route: 047
     Dates: start: 20221220
  2. OXERVATE [Suspect]
     Active Substance: CENEGERMIN-BKBJ
     Route: 047
     Dates: start: 20230228, end: 20230426
  3. OXERVATE [Suspect]
     Active Substance: CENEGERMIN-BKBJ
     Route: 047
     Dates: start: 20240829
  4. OXERVATE [Suspect]
     Active Substance: CENEGERMIN-BKBJ
  5. CYCLOSPORINE [Concomitant]
     Active Substance: CYCLOSPORINE
  6. MAGNESIUM [Concomitant]
     Active Substance: MAGNESIUM
  7. OTEZLA [Concomitant]
     Active Substance: APREMILAST
  8. RESTASIS [Concomitant]
     Active Substance: CYCLOSPORINE
  9. VITAMIN D3 [Concomitant]
     Active Substance: CHOLECALCIFEROL
  10. MELATONIN [Concomitant]
     Active Substance: MELATONIN
  11. TOPICORT [Concomitant]
     Active Substance: DESOXIMETASONE
  12. OMEGA 3 [Concomitant]
     Active Substance: CAPSAICIN
  13. LORAZEPAM [Concomitant]
     Active Substance: LORAZEPAM
  14. HERBALS\TURMERIC [Concomitant]
     Active Substance: HERBALS\TURMERIC
  15. CHOLECALCIFEROL [Concomitant]
     Active Substance: CHOLECALCIFEROL
  16. BACITRACIN-POLYMYXIN [Concomitant]
  17. LOTEMAX [Concomitant]
     Active Substance: LOTEPREDNOL ETABONATE
  18. ASPIRIN [Concomitant]
     Active Substance: ASPIRIN
  19. SODIUM CHLORIDE [Concomitant]
     Active Substance: SODIUM CHLORIDE
  20. EVOXAC [Concomitant]
     Active Substance: CEVIMELINE HYDROCHLORIDE

REACTIONS (2)
  - Eye pain [Unknown]
  - Treatment noncompliance [Unknown]
